FAERS Safety Report 10057764 (Version 1)
Quarter: 2014Q2

REPORT INFORMATION
  Report Type: Spontaneous
  Country: US (occurrence: US)
  Receive Date: 20140404
  Receipt Date: 20140404
  Transmission Date: 20141212
  Serious: No
  Sender: FDA-Public Use
  Company Number: US-BIOGENIDEC-2014BI028675

PATIENT
  Age: 51 Year
  Sex: Female

DRUGS (2)
  1. TECFIDERA [Suspect]
     Indication: MULTIPLE SCLEROSIS
     Route: 048
     Dates: start: 20140305, end: 20140311
  2. TECFIDERA [Suspect]
     Indication: MULTIPLE SCLEROSIS
     Route: 048
     Dates: start: 20140312, end: 20140320

REACTIONS (5)
  - Chills [Unknown]
  - Gait disturbance [Unknown]
  - Mobility decreased [Unknown]
  - Gastrooesophageal reflux disease [Unknown]
  - Abdominal pain [Unknown]
